FAERS Safety Report 8089268-0 (Version None)
Quarter: 2012Q1

REPORT INFORMATION
  Report Type: 
  Country: None (occurrence: None)
  Receive Date: 20120128
  Receipt Date: 20110707
  Transmission Date: 20120608
  Serious: No
  Sender: FDA-Public Use
  Company Number: US-ABBOTT-11P-163-0837712-00

PATIENT
  Sex: Female
  Weight: 59.02 kg

DRUGS (7)
  1. ASACOL [Concomitant]
     Indication: CROHN'S DISEASE
  2. CALCIUM [Concomitant]
     Indication: OSTEOPENIA
  3. ONDANSETRON HCL [Concomitant]
     Indication: NAUSEA
  4. HUMIRA [Suspect]
  5. MULTI-VITAMINS [Concomitant]
     Indication: VITAMIN SUPPLEMENTATION
  6. CALCIUM [Concomitant]
     Indication: STEROID THERAPY
  7. HUMIRA [Suspect]
     Indication: CROHN'S DISEASE
     Dates: start: 20100101, end: 20110101

REACTIONS (16)
  - PARAESTHESIA [None]
  - CROHN'S DISEASE [None]
  - ABDOMINAL PAIN [None]
  - DIZZINESS [None]
  - FREQUENT BOWEL MOVEMENTS [None]
  - PAIN [None]
  - NAUSEA [None]
  - DIARRHOEA [None]
  - HAEMATOCHEZIA [None]
  - INJECTION SITE ERYTHEMA [None]
  - HYPERACUSIS [None]
  - PHOTOSENSITIVITY REACTION [None]
  - HYPOAESTHESIA [None]
  - HEADACHE [None]
  - INJECTION SITE PRURITUS [None]
  - ARTHRALGIA [None]
